FAERS Safety Report 9797865 (Version 1)
Quarter: 2014Q1

REPORT INFORMATION
  Report Type: Spontaneous
  Country: US (occurrence: US)
  Receive Date: 20140106
  Receipt Date: 20140106
  Transmission Date: 20141002
  Serious: No
  Sender: FDA-Public Use
  Company Number: US-BAYER-2014-001573

PATIENT
  Age: 26 Year
  Sex: Female

DRUGS (3)
  1. GADAVIST [Suspect]
     Indication: NUCLEAR MAGNETIC RESONANCE IMAGING BRAIN
     Dosage: 9 ML, ONCE
     Dates: start: 20131220, end: 20131220
  2. GADAVIST [Suspect]
     Indication: HEADACHE
  3. GADAVIST [Suspect]
     Indication: CONVULSION

REACTIONS (2)
  - Nausea [Unknown]
  - Vomiting [Unknown]
